FAERS Safety Report 11003787 (Version 1)
Quarter: 2015Q2

REPORT INFORMATION
  Report Type: Spontaneous
  Country: JP (occurrence: JP)
  Receive Date: 20150409
  Receipt Date: 20150409
  Transmission Date: 20150821
  Serious: Yes (Other)
  Sender: FDA-Public Use
  Company Number: JP-SA-2015SA043842

PATIENT
  Sex: Female

DRUGS (4)
  1. LANTUS [Suspect]
     Active Substance: INSULIN GLARGINE
     Dosage: DOSE:3 UNIT(S)
     Route: 058
  2. AMARYL [Suspect]
     Active Substance: GLIMEPIRIDE
     Route: 048
  3. LANTUS [Suspect]
     Active Substance: INSULIN GLARGINE
     Dosage: DOSE:2 UNIT(S)
     Route: 058
  4. SOLOSTAR [Concomitant]
     Active Substance: DEVICE

REACTIONS (10)
  - Asthenia [Unknown]
  - Dyskinesia [Unknown]
  - Seizure [Unknown]
  - Headache [Unknown]
  - Abasia [Unknown]
  - Dizziness [Unknown]
  - Loss of consciousness [Unknown]
  - Nausea [Unknown]
  - Dyspnoea [Unknown]
  - Fall [Unknown]
